FAERS Safety Report 21028288 (Version 4)
Quarter: 2024Q1

REPORT INFORMATION
  Report Type: Spontaneous
  Country: US (occurrence: US)
  Receive Date: 20220630
  Receipt Date: 20240308
  Transmission Date: 20240410
  Serious: No
  Sender: FDA-Public Use
  Company Number: US-SANOFI-01166306

PATIENT
  Age: 57 Year
  Sex: Male

DRUGS (2)
  1. LANTUS SOLOSTAR [Suspect]
     Active Substance: INSULIN GLARGINE
     Indication: Type 2 diabetes mellitus
     Dosage: 55 IU, BID
     Route: 058
     Dates: start: 2014
  2. LANTUS SOLOSTAR [Suspect]
     Active Substance: INSULIN GLARGINE
     Dosage: 60 UNITS/AM AND 70 UNITS/PM, BID
     Route: 058
     Dates: start: 2020

REACTIONS (1)
  - Inappropriate schedule of product administration [Unknown]
